FAERS Safety Report 14605287 (Version 1)
Quarter: 2018Q1

REPORT INFORMATION
  Report Type: Spontaneous
  Country: US (occurrence: US)
  Receive Date: 20180306
  Receipt Date: 20180306
  Transmission Date: 20180509
  Serious: No
  Sender: FDA-Public Use
  Company Number: US-TARO-2017TAR01112

PATIENT
  Sex: Female

DRUGS (2)
  1. TERCONAZOLE VAGINAL CREAM 0.4% [Suspect]
     Active Substance: TERCONAZOLE
     Indication: VAGINAL INFECTION
     Dosage: UNK
     Route: 067
     Dates: start: 20171222
  2. TERCONAZOLE VAGINAL CREAM 0.4% [Suspect]
     Active Substance: TERCONAZOLE
     Dosage: UNK
     Route: 067

REACTIONS (2)
  - Application site irritation [Not Recovered/Not Resolved]
  - Product quality issue [Not Recovered/Not Resolved]
